FAERS Safety Report 7910619-9 (Version None)
Quarter: 2011Q4

REPORT INFORMATION
  Report Type: 
  Country: None (occurrence: None)
  Receive Date: 20111111
  Receipt Date: 20111104
  Transmission Date: 20120403
  Serious: Yes (Other)
  Sender: FDA-Public Use
  Company Number: US-US-EMD SERONO, INC.-7073939

PATIENT
  Sex: Female
  Weight: 78 kg

DRUGS (4)
  1. PREMARIN [Concomitant]
     Indication: HYSTERECTOMY
  2. REBIF [Suspect]
     Indication: MULTIPLE SCLEROSIS
     Route: 058
     Dates: start: 20110622
  3. LISINOPRIL [Concomitant]
     Indication: HYPERTENSION
  4. HYDROCHLOROTHIAZIDE [Concomitant]
     Indication: HYPERTENSION

REACTIONS (6)
  - INJECTION SITE PAIN [None]
  - BREAST CANCER STAGE I [None]
  - INJECTION SITE ERYTHEMA [None]
  - FATIGUE [None]
  - FEELING ABNORMAL [None]
  - INJECTION SITE PRURITUS [None]
